FAERS Safety Report 4538758-3 (Version None)
Quarter: 2004Q4

REPORT INFORMATION
  Report Type: 
  Country: None (occurrence: None)
  Receive Date: 20041222
  Receipt Date: 20041213
  Transmission Date: 20050328
  Serious: Yes (Other)
  Sender: FDA-Public Use
  Company Number: S04-USA-06681-01

PATIENT
  Age: 63 Year
  Sex: Female

DRUGS (10)
  1. LEVOTHROID [Suspect]
     Indication: HYPOTHYROIDISM
     Dosage: 88 MCG QD PO
     Route: 048
     Dates: start: 19940101, end: 20041001
  2. LEVOTHROID [Suspect]
     Indication: HYPOTHYROIDISM
     Dosage: 100 MCG QD PO
     Route: 048
     Dates: start: 20041002
  3. VITAMIN B COMPLEX CAP [Concomitant]
  4. FOLIC ACID [Concomitant]
  5. MULTI-VITAMIN [Concomitant]
  6. VITAMIN C [Concomitant]
  7. VITAMIN E [Concomitant]
  8. CALCIUM [Concomitant]
  9. ZINC [Concomitant]
  10. MAGNESIUM [Concomitant]

REACTIONS (7)
  - ANAEMIA [None]
  - BLINDNESS [None]
  - BLOOD PRESSURE INCREASED [None]
  - DIZZINESS [None]
  - HEART RATE INCREASED [None]
  - HYPOTHYROIDISM [None]
  - PALPITATIONS [None]
